FAERS Safety Report 6101161-9 (Version None)
Quarter: 2009Q1

REPORT INFORMATION
  Report Type: 
  Country: None (occurrence: None)
  Receive Date: 20090304
  Receipt Date: 20090224
  Transmission Date: 20090719
  Serious: Yes (Life-Threatening, Other)
  Sender: FDA-Public Use
  Company Number: US-ELI_LILLY_AND_COMPANY-US200902006955

PATIENT
  Sex: Female

DRUGS (12)
  1. HUMALOG [Suspect]
  2. HUMALOG [Suspect]
  3. HUMALOG [Suspect]
  4. TOPROL-XL [Concomitant]
     Dosage: 25 MG, UNK
  5. PLAVIX [Concomitant]
     Dosage: 75 MG, UNK
  6. ASPIRIN [Concomitant]
     Dosage: 325 MG, UNK
  7. ZETIA [Concomitant]
     Dosage: 10 MG, UNK
  8. CRESTOR [Concomitant]
     Dosage: 5 MG, UNK
  9. RANEXA [Concomitant]
     Dosage: UNK, 2/D
  10. LASIX [Concomitant]
     Dosage: 40 MG, 2/D
  11. POTASSIUM CHLORIDE [Concomitant]
     Dosage: 20 MEQ, UNK
  12. NITROSTAT [Concomitant]
     Dosage: UNK, AS NEEDED

REACTIONS (8)
  - AMNESIA [None]
  - BLOOD GLUCOSE INCREASED [None]
  - CARDIAC ARREST [None]
  - CARDIAC DISORDER [None]
  - CATARACT [None]
  - MYOCARDIAL INFARCTION [None]
  - STENT PLACEMENT [None]
  - VISUAL ACUITY REDUCED [None]
